FAERS Safety Report 6584494-1 (Version None)
Quarter: 2010Q1

REPORT INFORMATION
  Report Type: 
  Country: None (occurrence: None)
  Receive Date: 20100217
  Receipt Date: 20100205
  Transmission Date: 20100710
  Serious: Yes (Death, Hospitalization, Other)
  Sender: FDA-Public Use
  Company Number: US-BIOGENIDEC-2009BI032475

PATIENT
  Age: 55 Year
  Sex: Female
  Weight: 61 kg

DRUGS (10)
  1. TYSABRI [Suspect]
     Indication: MULTIPLE SCLEROSIS
     Route: 042
     Dates: start: 20070110, end: 20090916
  2. ENABLEX [Concomitant]
     Indication: NEUROGENIC BLADDER
  3. FLOMAX [Concomitant]
     Indication: NEUROGENIC BLADDER
  4. FOSAMAX [Concomitant]
  5. LEXAPRO [Concomitant]
  6. VITAMIN D [Concomitant]
  7. BACLOFEN [Concomitant]
     Indication: MUSCLE SPASTICITY
  8. ARICEPT [Concomitant]
     Indication: COGNITIVE DISORDER
  9. VITAMIN B-12 [Concomitant]
  10. 4-AMINOPYRIDINE [Concomitant]
     Indication: FATIGUE

REACTIONS (9)
  - ANAEMIA [None]
  - COMPLEX PARTIAL SEIZURES [None]
  - DEATH [None]
  - GAIT DISTURBANCE [None]
  - HEAD INJURY [None]
  - HERPES ZOSTER [None]
  - IMMUNE RECONSTITUTION SYNDROME [None]
  - PROGRESSIVE MULTIFOCAL LEUKOENCEPHALOPATHY [None]
  - UPPER RESPIRATORY TRACT INFECTION [None]
